FAERS Safety Report 4336523-3 (Version None)
Quarter: 2004Q2

REPORT INFORMATION
  Report Type: 
  Country: None (occurrence: None)
  Receive Date: 20040408
  Receipt Date: 20040408
  Transmission Date: 20050107
  Serious: Yes (Life-Threatening)
  Sender: FDA-Public Use
  Company Number: None

PATIENT
  Age: 57 Year
  Sex: Female
  Weight: 71.6683 kg

DRUGS (1)
  1. SYNTEST HS [Suspect]
     Indication: HORMONE REPLACEMENT THERAPY
     Dosage: 1 A DAY
     Dates: start: 20040317, end: 20040331

REACTIONS (4)
  - PERSONALITY CHANGE [None]
  - PHARMACEUTICAL PRODUCT COMPLAINT [None]
  - SUICIDAL IDEATION [None]
  - VISION BLURRED [None]
